FAERS Safety Report 8436696-7 (Version None)
Quarter: 2012Q2

REPORT INFORMATION
  Report Type: 
  Country: None (occurrence: None)
  Receive Date: 20120323
  Receipt Date: 20110624
  Transmission Date: 20120825
  Serious: Yes (Hospitalization)
  Sender: FDA-Public Use
  Company Number: 163-21880-11063346

PATIENT
  Age: 77 Year
  Sex: Male

DRUGS (3)
  1. REVLIMID [Suspect]
     Indication: MULTIPLE MYELOMA
     Dosage: 25 MG, DAILY X 28 DAYS, PO 25 MG, DAILY X 28 DAYS, PO
     Route: 048
     Dates: start: 20110603, end: 20110617
  2. REVLIMID [Suspect]
     Indication: MULTIPLE MYELOMA
     Dosage: 25 MG, DAILY X 28 DAYS, PO 25 MG, DAILY X 28 DAYS, PO
     Route: 048
     Dates: start: 20110619, end: 20110625
  3. VELCADE [Concomitant]

REACTIONS (3)
  - DYSPNOEA [None]
  - RASH [None]
  - HYPOKALAEMIA [None]
